FAERS Safety Report 22345857 (Version 1)
Quarter: 2023Q2

REPORT INFORMATION
  Report Type: Spontaneous
  Country: US (occurrence: None)
  Receive Date: 20230519
  Receipt Date: 20230519
  Transmission Date: 20230722
  Serious: No
  Sender: FDA-Public Use
  Company Number: None

PATIENT
  Sex: Female

DRUGS (2)
  1. AMBRISENTAN [Suspect]
     Active Substance: AMBRISENTAN
     Indication: Pulmonary arterial hypertension
     Dosage: FREQUENCY : DAILY;?
     Route: 048
     Dates: start: 202303, end: 202304
  2. TYVASO [Suspect]
     Active Substance: TREPROSTINIL

REACTIONS (4)
  - Nasal congestion [None]
  - Drug ineffective [None]
  - Headache [None]
  - Therapy interrupted [None]
